FAERS Safety Report 6100155-7 (Version None)
Quarter: 2009Q1

REPORT INFORMATION
  Report Type: 
  Country: None (occurrence: None)
  Receive Date: 20090303
  Receipt Date: 20090206
  Transmission Date: 20090719
  Serious: No
  Sender: FDA-Public Use
  Company Number: US-BAYER-200713678BCC

PATIENT
  Sex: Female

DRUGS (2)
  1. RID MOUSSE [Suspect]
     Indication: LICE INFESTATION
     Route: 061
     Dates: start: 20071028
  2. RID MOUSSE [Suspect]
     Route: 061
     Dates: start: 20071107

REACTIONS (1)
  - RASH PAPULAR [None]
